FAERS Safety Report 7464928-0 (Version None)
Quarter: 2011Q2

REPORT INFORMATION
  Report Type: 
  Country: None (occurrence: None)
  Receive Date: 20110509
  Receipt Date: 20100824
  Transmission Date: 20111010
  Serious: No
  Sender: FDA-Public Use
  Company Number: US-SANOFI-AVENTIS-2010SA051661

PATIENT
  Age: 65 Year
  Sex: Female

DRUGS (4)
  1. LANTUS [Suspect]
     Dosage: DOSE:40 UNIT(S)
     Route: 058
     Dates: start: 20070101
  2. SOLOSTAR [Suspect]
     Dates: start: 20100201
  3. APIDRA [Suspect]
     Dosage: SLIDING SCALE DOSE THRICE DAILY
     Route: 058
     Dates: start: 20100201
  4. SOLOSTAR [Suspect]
     Dates: start: 20070101

REACTIONS (5)
  - PRODUCT QUALITY ISSUE [None]
  - UNDERDOSE [None]
  - DEVICE MALFUNCTION [None]
  - INJURY ASSOCIATED WITH DEVICE [None]
  - WRONG TECHNIQUE IN DRUG USAGE PROCESS [None]
